FAERS Safety Report 25669692 (Version 1)
Quarter: 2025Q3

REPORT INFORMATION
  Report Type: Spontaneous
  Country: US (occurrence: US)
  Receive Date: 20250812
  Receipt Date: 20250812
  Transmission Date: 20251020
  Serious: No
  Sender: DR REDDYS
  Company Number: US-DRL-USA-USA/2025/07/010949

PATIENT
  Age: 73 Year
  Sex: Male
  Weight: 74.84 kg

DRUGS (1)
  1. FLUOROURACIL [Suspect]
     Active Substance: FLUOROURACIL
     Indication: Basal cell carcinoma
     Dosage: THE PRODUCT WAS PRESCRIBED TO BE USED FOR THE CONDITION BASAL CELL CARCINOMA LOCATED ON THE PATIENT^
     Route: 061
     Dates: start: 20250627

REACTIONS (4)
  - Contraindication to medical treatment [Unknown]
  - Product prescribing error [Unknown]
  - Application site erythema [Not Recovered/Not Resolved]
  - Application site pain [Not Recovered/Not Resolved]

NARRATIVE: CASE EVENT DATE: 20250627
